FAERS Safety Report 5191489-1 (Version None)
Quarter: 2006Q4

REPORT INFORMATION
  Report Type: 
  Country: None (occurrence: None)
  Receive Date: 20061219
  Receipt Date: 20061211
  Transmission Date: 20070319
  Serious: Yes (Death, Hospitalization, Other)
  Sender: FDA-Public Use
  Company Number: 2005092327

PATIENT
  Age: 63 Year
  Sex: Female

DRUGS (6)
  1. NEURONTIN [Suspect]
     Indication: BIPOLAR DISORDER
  2. CLORAZEPATE (CLORAZEPATE DIPOTASSIUM) [Concomitant]
  3. REMERON [Concomitant]
  4. SEROQUEL [Concomitant]
  5. AMBIEN [Concomitant]
  6. DEPAKOTE [Concomitant]

REACTIONS (7)
  - COMPLETED SUICIDE [None]
  - DRUG INEFFECTIVE [None]
  - ENCEPHALOPATHY [None]
  - LOSS OF CONSCIOUSNESS [None]
  - MULTI-ORGAN FAILURE [None]
  - MULTIPLE DRUG OVERDOSE [None]
  - RESPIRATORY FAILURE [None]
